FAERS Safety Report 11760932 (Version 1)
Quarter: 2015Q4

REPORT INFORMATION
  Report Type: Spontaneous
  Country: HU (occurrence: HU)
  Receive Date: 20151120
  Receipt Date: 20151120
  Transmission Date: 20160304
  Serious: Yes (Death)
  Sender: FDA-Public Use
  Company Number: HU-FRESENIUS KABI-FK201505925

PATIENT
  Age: 69 Year
  Sex: Male

DRUGS (3)
  1. CISPLATIN KABI [Suspect]
     Active Substance: CISPLATIN
     Indication: OESOPHAGEAL SQUAMOUS CELL CARCINOMA
     Route: 041
     Dates: start: 20151013, end: 20151013
  2. FLUOROURACIL-TEVA [Suspect]
     Active Substance: FLUOROURACIL
     Indication: OESOPHAGEAL SQUAMOUS CELL CARCINOMA
     Route: 041
     Dates: start: 20151012, end: 20151016
  3. CISPLATIN KABI [Suspect]
     Active Substance: CISPLATIN
     Route: 041
     Dates: start: 20151012, end: 20151012

REACTIONS (5)
  - Febrile neutropenia [Fatal]
  - Product use issue [Unknown]
  - Thrombocytopenia [Fatal]
  - Diarrhoea [Fatal]
  - Dehydration [Fatal]

NARRATIVE: CASE EVENT DATE: 20151012
